FAERS Safety Report 23766867 (Version 2)
Quarter: 2024Q2

REPORT INFORMATION
  Report Type: Report from Study
  Country: US (occurrence: US)
  Receive Date: 20240422
  Receipt Date: 20240503
  Transmission Date: 20240716
  Serious: Yes (Hospitalization, Other)
  Sender: FDA-Public Use
  Company Number: US-ABBVIE-5724619

PATIENT
  Sex: Male

DRUGS (1)
  1. VENCLEXTA [Suspect]
     Active Substance: VENETOCLAX
     Indication: Chronic lymphocytic leukaemia
     Dosage: LAST ADMIN DATE 2024
     Route: 048
     Dates: start: 20240304

REACTIONS (7)
  - Hypotension [Recovered/Resolved]
  - Hepatic failure [Unknown]
  - Hepatic cirrhosis [Unknown]
  - Heart rate increased [Recovered/Resolved]
  - Atrial fibrillation [Recovered/Resolved]
  - Unevaluable event [Unknown]
  - Ascites [Unknown]

NARRATIVE: CASE EVENT DATE: 20240101
